FAERS Safety Report 9332938 (Version 1)
Quarter: 2013Q2

REPORT INFORMATION
  Report Type: Spontaneous
  Country: US (occurrence: US)
  Receive Date: 20130606
  Receipt Date: 20130606
  Transmission Date: 20140414
  Serious: Yes (Other)
  Sender: FDA-Public Use
  Company Number: US-ASTELLAS-2013US005802

PATIENT
  Sex: Female
  Weight: 77 kg

DRUGS (3)
  1. VESICARE [Suspect]
     Indication: PRODUCT USED FOR UNKNOWN INDICATION
     Dosage: 5 MG, UID/QD
     Route: 048
     Dates: start: 2008
  2. HYDROCHLOROTHIAZID [Concomitant]
     Indication: HYPERTENSION
     Dosage: 25 MG, UID/QD
     Route: 048
  3. CITALOPRAM [Concomitant]
     Indication: DIZZINESS
     Dosage: 20 MG, UID/QD
     Route: 048

REACTIONS (1)
  - Multiple sclerosis [Unknown]
